FAERS Safety Report 11219691 (Version 1)
Quarter: 2015Q2

REPORT INFORMATION
  Report Type: Spontaneous
  Country: US (occurrence: US)
  Receive Date: 20150625
  Receipt Date: 20150625
  Transmission Date: 20150821
  Serious: Yes (Other)
  Sender: FDA-Public Use
  Company Number: US-GLAXOSMITHKLINE-US2015GSK088825

PATIENT
  Sex: Male

DRUGS (1)
  1. TANZEUM [Suspect]
     Active Substance: ALBIGLUTIDE
     Indication: TYPE 2 DIABETES MELLITUS
     Dosage: 30 MG, WE
     Route: 065
     Dates: start: 201504

REACTIONS (5)
  - Lyme disease [Unknown]
  - Feeling abnormal [Unknown]
  - Device misuse [Unknown]
  - Depressed mood [Unknown]
  - Underdose [Unknown]

NARRATIVE: CASE EVENT DATE: 2015
